FAERS Safety Report 7308035-6 (Version None)
Quarter: 2011Q1

REPORT INFORMATION
  Report Type: 
  Country: None (occurrence: None)
  Receive Date: 20110223
  Receipt Date: 20100908
  Transmission Date: 20110831
  Serious: Yes (Hospitalization, Other)
  Sender: FDA-Public Use
  Company Number: US-BAYER-200942479NA

PATIENT
  Sex: Female
  Weight: 128 kg

DRUGS (12)
  1. PHENERGAN [Concomitant]
     Indication: NAUSEA
     Dosage: UNK
  2. UNCODEABLE ^UNCLASSIFIABLE^ [Concomitant]
     Indication: SINUSITIS
  3. BENICAR [Concomitant]
     Indication: HYPERTENSION
     Dosage: UNK
     Dates: start: 20061130
  4. OCELLA [Suspect]
     Indication: MENSTRUAL CYCLE MANAGEMENT
  5. COREG [Concomitant]
     Indication: HYPERTENSION
     Dosage: 625 MG, UNK
  6. LORTAB [Concomitant]
     Indication: PAIN
     Dosage: UNK
     Dates: start: 20061220
  7. OCELLA [Suspect]
     Indication: ORAL CONTRACEPTION
     Dosage: UNK
     Dates: start: 20090601, end: 20091201
  8. FLONASE [Concomitant]
     Indication: SINUSITIS
  9. UNCODEABLE ^UNCLASSIFIABLE^ [Concomitant]
     Indication: ANTIBIOTIC THERAPY
  10. YASMIN [Suspect]
     Indication: MENSTRUAL CYCLE MANAGEMENT
     Dosage: UNK
     Dates: start: 20100101
  11. YASMIN [Suspect]
     Indication: CONTRACEPTION
     Dosage: UNK
     Dates: start: 20031001, end: 20090501
  12. ZANTAC [Concomitant]
     Indication: DYSPEPSIA
     Dosage: 240 MG, UNK

REACTIONS (9)
  - CHOLESTEROSIS [None]
  - MUSCLE SPASMS [None]
  - PAIN [None]
  - MENTAL DISORDER [None]
  - CHOLELITHIASIS [None]
  - DYSPEPSIA [None]
  - WEIGHT INCREASED [None]
  - CHOLECYSTITIS [None]
  - ABDOMINAL PAIN UPPER [None]
